FAERS Safety Report 7945294-0 (Version None)
Quarter: 2011Q4

REPORT INFORMATION
  Report Type: 
  Country: None (occurrence: None)
  Receive Date: 20111122
  Receipt Date: 20111114
  Transmission Date: 20120403
  Serious: Yes (Other)
  Sender: FDA-Public Use
  Company Number: 2011SP053560

PATIENT
  Sex: Female

DRUGS (3)
  1. RIBAVIRIN [Suspect]
     Indication: HEPATITIS C
     Dates: start: 20110609
  2. PEG-INTRON [Suspect]
     Indication: HEPATITIS C
     Dates: start: 20110609
  3. MARIJUANA [Suspect]

REACTIONS (3)
  - DYSARTHRIA [None]
  - PRESSURE OF SPEECH [None]
  - DRUG ABUSE [None]
